FAERS Safety Report 16414042 (Version 2)
Quarter: 2023Q2

REPORT INFORMATION
  Report Type: Spontaneous
  Country: IT (occurrence: IT)
  Receive Date: 20190611
  Receipt Date: 20230613
  Transmission Date: 20230721
  Serious: Yes (Other)
  Sender: FDA-Public Use
  Company Number: IT-AUROBINDO-AUR-APL-2019-033654

PATIENT
  Age: 56 Year
  Sex: Male

DRUGS (23)
  1. MELPHALAN [Suspect]
     Active Substance: MELPHALAN
     Indication: Plasma cell myeloma
     Dosage: UNK, 6 CYCLES
     Route: 065
     Dates: start: 20090115, end: 20090604
  2. MELPHALAN [Suspect]
     Active Substance: MELPHALAN
     Dosage: UNK, 1 CYCLE
     Route: 065
     Dates: start: 20140625
  3. DOXORUBICIN [Suspect]
     Active Substance: DOXORUBICIN
     Indication: Plasma cell myeloma
     Dosage: UNK, 4 CYCLES
     Route: 065
     Dates: start: 20100115, end: 20100406
  4. DOXORUBICIN [Suspect]
     Active Substance: DOXORUBICIN
     Dosage: UNK, 2 CYCLES
     Route: 065
     Dates: start: 20100616, end: 20100803
  5. DEXAMETHASONE [Suspect]
     Active Substance: DEXAMETHASONE
     Indication: Plasma cell myeloma
     Dosage: UNK, FOUR CYCLES
     Route: 065
     Dates: start: 20080701, end: 20080923
  6. DEXAMETHASONE [Suspect]
     Active Substance: DEXAMETHASONE
     Dosage: UNK, THREE CYCLES
     Route: 065
     Dates: start: 20091030, end: 20091211
  7. DEXAMETHASONE [Suspect]
     Active Substance: DEXAMETHASONE
     Dosage: UNK, 2 CYCLES
     Route: 065
     Dates: start: 20100616, end: 20100803
  8. DEXAMETHASONE [Suspect]
     Active Substance: DEXAMETHASONE
     Dosage: UNK, 7 CYCLES
     Route: 065
     Dates: start: 20151115, end: 20160225
  9. DEXAMETHASONE [Suspect]
     Active Substance: DEXAMETHASONE
     Dosage: UNK, 4 CYCLES
     Route: 065
     Dates: start: 20100115, end: 20100406
  10. LENALIDOMIDE [Suspect]
     Active Substance: LENALIDOMIDE
     Indication: Plasma cell myeloma
     Dosage: UNK, 6 CYCLES
     Route: 065
     Dates: start: 20090115, end: 20090604
  11. LENALIDOMIDE [Suspect]
     Active Substance: LENALIDOMIDE
     Dosage: UNK, 4 CYCLES
     Route: 065
     Dates: start: 20080701, end: 20080923
  12. CYCLOPHOSPHAMIDE [Suspect]
     Active Substance: CYCLOPHOSPHAMIDE
     Indication: Plasma cell myeloma
     Dosage: UNK, 2 CYCLES
     Route: 065
     Dates: start: 20100616, end: 20100803
  13. CYCLOPHOSPHAMIDE [Suspect]
     Active Substance: CYCLOPHOSPHAMIDE
     Dosage: UNK, SINGLE CYCLE
     Route: 065
     Dates: start: 20081121
  14. ETOPOSIDE [Suspect]
     Active Substance: ETOPOSIDE
     Indication: Plasma cell myeloma
     Dosage: UNK, 2 CYCLES
     Route: 065
     Dates: start: 20100616, end: 20100803
  15. PREDNISONE [Suspect]
     Active Substance: PREDNISONE
     Indication: Plasma cell myeloma
     Dosage: UNK, 1 CYCLE
     Route: 065
     Dates: start: 20140625
  16. PREDNISONE [Suspect]
     Active Substance: PREDNISONE
     Dosage: UNK, 6 CYCLES
     Route: 065
     Dates: start: 20090115, end: 20090604
  17. POMALIDOMIDE [Suspect]
     Active Substance: POMALIDOMIDE
     Indication: Plasma cell myeloma
     Dosage: UNK, 7 CYCLES
     Route: 065
     Dates: start: 20151115, end: 20160225
  18. BORTEZOMIB [Suspect]
     Active Substance: BORTEZOMIB
     Indication: Plasma cell myeloma
     Dosage: UNK, 3 CYCLES
     Route: 065
     Dates: start: 20091030, end: 20091211
  19. BORTEZOMIB [Suspect]
     Active Substance: BORTEZOMIB
     Dosage: UNK, 4 CYCLES
     Route: 065
     Dates: start: 20100115, end: 20100406
  20. BORTEZOMIB [Suspect]
     Active Substance: BORTEZOMIB
     Dosage: UNK, 2 CYCLES
     Route: 065
     Dates: start: 20100616, end: 20100803
  21. CARFILZOMIB [Suspect]
     Active Substance: CARFILZOMIB
     Indication: Plasma cell myeloma
     Dosage: UNK, 7 CYCLES
     Route: 065
     Dates: start: 20151115, end: 20160225
  22. BENDAMUSTINE [Suspect]
     Active Substance: BENDAMUSTINE
     Indication: Plasma cell myeloma
     Dosage: UNK, 5 CYCLES
     Route: 065
     Dates: start: 20140115, end: 20140520
  23. LAMIVUDINE [Concomitant]
     Active Substance: LAMIVUDINE
     Indication: Product used for unknown indication
     Dosage: UNK
     Route: 065

REACTIONS (3)
  - Plasma cell myeloma [Unknown]
  - Malignant neoplasm progression [Unknown]
  - Hepatitis B reactivation [Not Recovered/Not Resolved]
